FAERS Safety Report 5048247-8 (Version None)
Quarter: 2006Q3

REPORT INFORMATION
  Report Type: 
  Country: None (occurrence: None)
  Receive Date: 20060711
  Receipt Date: 20060704
  Transmission Date: 20061208
  Serious: Yes (Hospitalization, Other)
  Sender: FDA-Public Use
  Company Number: FR-BRISTOL-MYERS SQUIBB COMPANY-13434873

PATIENT
  Age: 55 Year
  Sex: Male

DRUGS (4)
  1. SINEMET [Suspect]
     Route: 048
     Dates: start: 19960815
  2. STALEVO 100 [Suspect]
     Route: 048
     Dates: start: 20050408
  3. SIFROL [Suspect]
     Dates: end: 20060407
  4. CELANCE [Suspect]
     Dates: start: 19960615

REACTIONS (4)
  - AGGRESSION [None]
  - AGITATION [None]
  - DRUG DEPENDENCE [None]
  - LIBIDO INCREASED [None]
